FAERS Safety Report 4980584-5 (Version None)
Quarter: 2006Q2

REPORT INFORMATION
  Report Type: 
  Country: None (occurrence: None)
  Receive Date: 20060424
  Receipt Date: 20050317
  Transmission Date: 20061013
  Serious: Yes (Hospitalization, Other)
  Sender: FDA-Public Use
  Company Number: US-MERCK-0503USA04284

PATIENT
  Age: 57 Year
  Sex: Female
  Weight: 82 kg

DRUGS (16)
  1. VIOXX [Suspect]
     Route: 048
  2. COUMADIN [Concomitant]
     Route: 065
  3. PRAVACHOL [Concomitant]
     Route: 065
  4. ZYRTEC [Concomitant]
     Route: 065
  5. PLENDIL [Concomitant]
     Route: 065
  6. EVISTA [Concomitant]
     Route: 065
  7. PEPCID [Concomitant]
     Route: 065
  8. VEETIDS [Concomitant]
     Route: 065
  9. TRIMOX [Concomitant]
     Route: 065
  10. VICODIN [Concomitant]
     Route: 065
  11. MIACALCIN [Concomitant]
     Route: 065
  12. CARISOPRODOL [Concomitant]
     Route: 065
  13. PREMARIN [Concomitant]
     Route: 065
  14. [THERAPY UNSPECIFIED] [Concomitant]
     Route: 065
  15. AZMACORT [Concomitant]
     Route: 065
  16. CEPHALEXIN [Concomitant]
     Route: 065

REACTIONS (32)
  - ACUTE MYOCARDIAL INFARCTION [None]
  - AORTIC VALVE STENOSIS [None]
  - BACK PAIN [None]
  - BLINDNESS UNILATERAL [None]
  - CEREBROVASCULAR ACCIDENT [None]
  - CERVICOBRACHIAL SYNDROME [None]
  - CHEST PAIN [None]
  - CORONARY ARTERY DISEASE [None]
  - DIZZINESS [None]
  - EYE HAEMORRHAGE [None]
  - FATIGUE [None]
  - HAEMORRHAGE [None]
  - HYPERCHOLESTEROLAEMIA [None]
  - HYPERTENSION [None]
  - HYPOAESTHESIA [None]
  - JOINT INJURY [None]
  - MACULAR OEDEMA [None]
  - MITRAL VALVE INCOMPETENCE [None]
  - MYOCARDIAL ISCHAEMIA [None]
  - NECK PAIN [None]
  - NERVE COMPRESSION [None]
  - OEDEMA [None]
  - RETINAL HAEMORRHAGE [None]
  - RETINAL ISCHAEMIA [None]
  - RETINAL VASCULAR THROMBOSIS [None]
  - RETINAL VEIN OCCLUSION [None]
  - THROMBOSIS [None]
  - TRICUSPID VALVE INCOMPETENCE [None]
  - VENTRICULAR HYPERTROPHY [None]
  - VENTRICULAR HYPOKINESIA [None]
  - VISUAL ACUITY REDUCED [None]
  - VISUAL DISTURBANCE [None]
